FAERS Safety Report 9143917 (Version 1)
Quarter: 2013Q1

REPORT INFORMATION
  Report Type: Spontaneous
  Country: DE (occurrence: DE)
  Receive Date: 20130306
  Receipt Date: 20130306
  Transmission Date: 20140127
  Serious: Yes (Life-Threatening)
  Sender: FDA-Public Use
  Company Number: DE-ROCHE-1191767

PATIENT
  Age: 34 Year
  Sex: Male
  Weight: 96 kg

DRUGS (12)
  1. CYMEVENE [Suspect]
     Indication: CYTOMEGALOVIRUS INFECTION
     Route: 065
  2. VALCYTE [Suspect]
     Indication: CYTOMEGALOVIRUS INFECTION
     Route: 048
     Dates: start: 20120524
  3. EVEROLIMUS [Concomitant]
     Indication: HEART TRANSPLANT
     Dosage: 2-1.5 (UNIT NOT REPORTED)
     Route: 048
  4. CYCLOSPORIN [Concomitant]
     Indication: HEART TRANSPLANT
     Route: 065
  5. PREDNISOLON [Concomitant]
     Indication: HEART TRANSPLANT
     Route: 048
  6. ASS [Concomitant]
     Indication: HEART TRANSPLANT
     Route: 048
  7. DELIX [Concomitant]
     Indication: HYPERTENSION
     Route: 048
  8. TORSEMIDE [Concomitant]
     Indication: RENAL FAILURE
     Dosage: IN THE MORNING
     Route: 048
  9. XIPAMID [Concomitant]
     Indication: RENAL FAILURE
     Route: 048
  10. PANTOZOL [Concomitant]
     Indication: PROPHYLAXIS
     Route: 048
  11. L-THYROXIN [Concomitant]
     Indication: HYPOTHYROIDISM
     Route: 048
  12. FOSCAVIR [Concomitant]

REACTIONS (2)
  - Drug effect decreased [Unknown]
  - Cytomegalovirus infection [Recovered/Resolved]
